FAERS Safety Report 7194300-2 (Version None)
Quarter: 2010Q4

REPORT INFORMATION
  Report Type: 
  Country: None (occurrence: None)
  Receive Date: 20101223
  Receipt Date: 20101012
  Transmission Date: 20110411
  Serious: No
  Sender: FDA-Public Use
  Company Number: US-BAUSCH-2010BL005814

PATIENT
  Age: 40 Year
  Sex: Female

DRUGS (3)
  1. ZIRGAN [Suspect]
     Indication: HERPES SIMPLEX OPHTHALMIC
     Route: 047
     Dates: start: 20100901, end: 20100901
  2. ZIRGAN [Suspect]
     Route: 047
     Dates: start: 20100901
  3. VIROPTIC [Concomitant]
     Indication: HERPES SIMPLEX OPHTHALMIC
     Route: 047
     Dates: start: 20100901, end: 20100901

REACTIONS (1)
  - DRUG EFFECT DECREASED [None]
